FAERS Safety Report 9516437 (Version 1)
Quarter: 2013Q3

REPORT INFORMATION
  Report Type: Spontaneous
  Country: DE (occurrence: DE)
  Receive Date: 20130911
  Receipt Date: 20130911
  Transmission Date: 20140515
  Serious: Yes (Other)
  Sender: FDA-Public Use
  Company Number: DE-PFIZER INC-2013254295

PATIENT
  Age: 34 Year
  Sex: Female

DRUGS (1)
  1. SILDENAFIL CITRATE [Suspect]
     Dosage: 25 MG, TID

REACTIONS (3)
  - Dyspnoea [Recovering/Resolving]
  - Pulmonary vascular resistance abnormality [Recovering/Resolving]
  - Walking distance test abnormal [Recovering/Resolving]
